FAERS Safety Report 7842113-8 (Version None)
Quarter: 2011Q4

REPORT INFORMATION
  Report Type: 
  Country: None (occurrence: None)
  Receive Date: 20111025
  Receipt Date: 20111019
  Transmission Date: 20120403
  Serious: Yes (Hospitalization, Other)
  Sender: FDA-Public Use
  Company Number: JP-PFIZER INC-2011216420

PATIENT
  Age: 34 Year
  Sex: Female

DRUGS (3)
  1. SOLU-MEDROL [Suspect]
     Indication: VOGT-KOYANAGI-HARADA SYNDROME
     Dosage: 1000 MG, 1X/DAY
     Route: 041
     Dates: start: 20081001
  2. DEPO-MEDROL [Suspect]
     Indication: VOGT-KOYANAGI-HARADA SYNDROME
     Dosage: 40 MG, 1X/DAY
     Dates: start: 20081001, end: 20090901
  3. PREDNISOLONE [Suspect]
     Indication: VOGT-KOYANAGI-HARADA SYNDROME
     Dosage: 30 MG, 3X/DAY
     Route: 048
     Dates: start: 20081001, end: 20090601

REACTIONS (2)
  - CATARACT [None]
  - RETINAL DETACHMENT [None]
